FAERS Safety Report 14281896 (Version 1)
Quarter: 2017Q4

REPORT INFORMATION
  Report Type: Spontaneous
  Country: FR (occurrence: FR)
  Receive Date: 20171213
  Receipt Date: 20171213
  Transmission Date: 20180321
  Serious: Yes (Life-Threatening, Hospitalization)
  Sender: FDA-Public Use
  Company Number: FR-LINDE-FR-LHC-2017254

PATIENT
  Age: 57 Year
  Sex: Female

DRUGS (1)
  1. OXYGEN (GENERIC) [Suspect]
     Active Substance: OXYGEN
     Indication: SUDDEN HEARING LOSS

REACTIONS (5)
  - Air embolism [Recovered/Resolved]
  - Off label use [Unknown]
  - Pneumomediastinum [Recovered/Resolved]
  - Pneumoperitoneum [Recovered/Resolved]
  - Barotrauma [Recovered/Resolved]
